FAERS Safety Report 7755343-0 (Version None)
Quarter: 2011Q3

REPORT INFORMATION
  Report Type: 
  Country: None (occurrence: None)
  Receive Date: 20110914
  Receipt Date: 20110831
  Transmission Date: 20111222
  Serious: Yes (Other)
  Sender: FDA-Public Use
  Company Number: US-1187799

PATIENT
  Sex: Male

DRUGS (3)
  1. PREDNISOLONE ACETATE [Concomitant]
  2. NEVANAC [Suspect]
     Indication: EYE SWELLING
     Dosage: 1 GTT TID OD OPHTHALMIC
     Route: 047
     Dates: start: 20110812, end: 20110821
  3. BESIVANCE [Concomitant]

REACTIONS (3)
  - CORNEAL PERFORATION [None]
  - ULCERATIVE KERATITIS [None]
  - CORNEAL TRANSPLANT [None]
